FAERS Safety Report 9405897 (Version 2)
Quarter: 2014Q1

REPORT INFORMATION
  Report Type: Spontaneous
  Country: US (occurrence: US)
  Receive Date: 20130717
  Receipt Date: 20140102
  Transmission Date: 20141002
  Serious: Yes (Death, Hospitalization)
  Sender: FDA-Public Use
  Company Number: US-B.I. PHARMACEUTICALS,INC./RIDGEFIELD-2013-BI-20551BP

PATIENT
  Sex: Male
  Weight: 88.9 kg

DRUGS (9)
  1. PRADAXA [Suspect]
     Dosage: 300 MG
     Route: 048
     Dates: start: 20110314, end: 20110315
  2. DIGOXIN [Concomitant]
     Dosage: 0.125 MG
     Route: 048
     Dates: start: 201101, end: 201103
  3. LASIX [Concomitant]
     Dosage: 20 MG
     Route: 048
     Dates: start: 201102, end: 201103
  4. SPIRONOLACTONE [Concomitant]
     Dosage: 25 MG
     Route: 048
     Dates: start: 201102, end: 201103
  5. BISOPROLOL [Concomitant]
     Dosage: 5 MG
     Route: 048
     Dates: start: 201101, end: 201103
  6. LOSARTAN [Concomitant]
     Dosage: 100 MG
     Route: 048
  7. SIMVASTATIN [Concomitant]
     Dosage: 40 MG
     Route: 048
     Dates: start: 201102, end: 201103
  8. TERAZOSIN [Concomitant]
     Dosage: 5 MG
     Route: 048
     Dates: start: 2005, end: 201103
  9. OMEPRAZOLE [Concomitant]
     Dosage: 40 MG
     Route: 048
     Dates: start: 2010, end: 201103

REACTIONS (1)
  - Haemorrhage intracranial [Fatal]
